FAERS Safety Report 22185803 (Version 1)
Quarter: 2023Q2

REPORT INFORMATION
  Report Type: Spontaneous
  Country: US (occurrence: None)
  Receive Date: 20230406
  Receipt Date: 20230406
  Transmission Date: 20230722
  Serious: No
  Sender: FDA-Public Use
  Company Number: None

PATIENT
  Sex: Female
  Weight: 19.35 kg

DRUGS (6)
  1. MONTELUKAST [Suspect]
     Active Substance: MONTELUKAST SODIUM
     Indication: Multiple allergies
     Dosage: FREQUENCY : DAILY;?
     Route: 048
  2. CETIRIZINE HYDROCHLORIDE [Concomitant]
     Active Substance: CETIRIZINE HYDROCHLORIDE
  3. CLONIDINE [Concomitant]
     Active Substance: CLONIDINE
  4. flouride [Concomitant]
  5. VITAMINS [Concomitant]
     Active Substance: VITAMINS
  6. Desonide cream prn [Concomitant]

REACTIONS (4)
  - Anger [None]
  - Anger [None]
  - Aggression [None]
  - Autism spectrum disorder [None]
